FAERS Safety Report 10612398 (Version 2)
Quarter: 2015Q1

REPORT INFORMATION
  Report Type: Spontaneous
  Country: JP (occurrence: JP)
  Receive Date: 20141127
  Receipt Date: 20150123
  Transmission Date: 20150720
  Serious: No
  Sender: FDA-Public Use
  Company Number: JP-ROCHE-1498296

PATIENT
  Sex: Male
  Weight: 26 kg

DRUGS (5)
  1. SINGULAIR [Concomitant]
     Active Substance: MONTELUKAST SODIUM
  2. ALESION [Concomitant]
     Active Substance: EPINASTINE HYDROCHLORIDE
  3. XOLAIR [Suspect]
     Active Substance: OMALIZUMAB
     Indication: ASTHMA
     Route: 058
     Dates: start: 20140301
  4. FLUTIDE [Concomitant]
     Active Substance: FLUTICASONE PROPIONATE
  5. SEREVENT [Concomitant]
     Active Substance: SALMETEROL XINAFOATE

REACTIONS (4)
  - Asthma [Recovered/Resolved]
  - Nasopharyngitis [Unknown]
  - Blood immunoglobulin E increased [Recovering/Resolving]
  - Rhinovirus infection [Unknown]
